FAERS Safety Report 25651498 (Version 1)
Quarter: 2025Q3

REPORT INFORMATION
  Report Type: Report from Study
  Country: US (occurrence: US)
  Receive Date: 20250806
  Receipt Date: 20250806
  Transmission Date: 20251021
  Serious: No
  Sender: AGIOS PHARMACEUTICALS
  Company Number: US-AGIOS-2507US04404

PATIENT
  Age: 61 Year
  Sex: Female

DRUGS (1)
  1. MITAPIVAT [Suspect]
     Active Substance: MITAPIVAT
     Indication: Pyruvate kinase deficiency anaemia
     Route: 048
     Dates: start: 20250718

REACTIONS (2)
  - Haemoglobin decreased [Unknown]
  - Packaging design issue [Unknown]

NARRATIVE: CASE EVENT DATE: 20250729
